FAERS Safety Report 6879822-3 (Version None)
Quarter: 2010Q3

REPORT INFORMATION
  Report Type: 
  Country: None (occurrence: None)
  Receive Date: 20100728
  Receipt Date: 20100720
  Transmission Date: 20110219
  Serious: Yes (Hospitalization)
  Sender: FDA-Public Use
  Company Number: GB-SP-2010-03941

PATIENT
  Age: 67 Year
  Sex: Male

DRUGS (1)
  1. BCG  THERAPEUTICS [Suspect]
     Indication: BLADDER CANCER
     Route: 043

REACTIONS (4)
  - BACK PAIN [None]
  - BOVINE TUBERCULOSIS [None]
  - INTRASPINAL ABSCESS [None]
  - LUMBAR SPINAL STENOSIS [None]
